FAERS Safety Report 5291894-9 (Version None)
Quarter: 2007Q2

REPORT INFORMATION
  Report Type: 
  Country: None (occurrence: None)
  Receive Date: 20070403
  Receipt Date: 20070326
  Transmission Date: 20071010
  Serious: Yes (Other)
  Sender: FDA-Public Use
  Company Number: 238904

PATIENT
  Age: 82 Year
  Sex: Female

DRUGS (7)
  1. LUCENTIS [Suspect]
     Dates: start: 20070320
  2. HYDROCHLOROTHIAZIDE [Concomitant]
  3. NEXIUM [Concomitant]
  4. GLYBURIDE [Concomitant]
  5. ASPIRIN [Concomitant]
  6. UNKNOWN DRUG (GENERIC COMPONENT(S) NOT KNOWN) [Concomitant]
  7. UNKNOWN DRUG (GENERIC COMPONENT(S) NOT KNOWN) [Concomitant]

REACTIONS (4)
  - EYE DISCHARGE [None]
  - EYE INFECTION [None]
  - FOREIGN BODY SENSATION IN EYES [None]
  - OCULAR HYPERAEMIA [None]
